FAERS Safety Report 24306785 (Version 2)
Quarter: 2024Q4

REPORT INFORMATION
  Report Type: Spontaneous
  Country: ES (occurrence: ES)
  Receive Date: 20240911
  Receipt Date: 20241022
  Transmission Date: 20250115
  Serious: Yes (Other)
  Sender: CELLTRION
  Company Number: ES-ROCHE-3521130

PATIENT

DRUGS (9)
  1. MABTHERA [Suspect]
     Active Substance: RITUXIMAB
     Indication: Diffuse large B-cell lymphoma stage III
     Dosage: EVERY 21 DAYS
     Route: 042
     Dates: start: 20230131, end: 20230531
  2. MABTHERA [Suspect]
     Active Substance: RITUXIMAB
     Dosage: EVERY 21 DAYS
     Route: 042
     Dates: start: 20230828, end: 20240103
  3. RITUXIMAB [Suspect]
     Active Substance: RITUXIMAB
     Indication: Diffuse large B-cell lymphoma stage III
     Dosage: UNK
     Route: 065
  4. PREDNISONE [Suspect]
     Active Substance: PREDNISONE
     Indication: Diffuse large B-cell lymphoma stage III
     Dosage: UNK
     Route: 065
  5. DOXORUBICIN HYDROCHLORIDE [Suspect]
     Active Substance: DOXORUBICIN HYDROCHLORIDE
     Indication: Diffuse large B-cell lymphoma stage III
     Dosage: UNK
     Route: 065
  6. BENDAMUSTINE [Suspect]
     Active Substance: BENDAMUSTINE
     Indication: Diffuse large B-cell lymphoma stage III
     Dosage: UNK
     Route: 065
  7. VINCRISTINE SULFATE [Suspect]
     Active Substance: VINCRISTINE SULFATE
     Indication: Diffuse large B-cell lymphoma stage III
     Dosage: UNK
     Route: 065
  8. CYCLOPHOSPHAMIDE [Suspect]
     Active Substance: CYCLOPHOSPHAMIDE
     Indication: Diffuse large B-cell lymphoma stage III
     Dosage: UNK
     Route: 065
  9. POLIVY [Suspect]
     Active Substance: POLATUZUMAB VEDOTIN-PIIQ
     Indication: Diffuse large B-cell lymphoma stage III
     Dosage: UNK
     Route: 065

REACTIONS (5)
  - Thrombocytopenia [Unknown]
  - Neutropenia [Unknown]
  - COVID-19 [Unknown]
  - Mucosal inflammation [Unknown]
  - Infusion related reaction [Unknown]
